FAERS Safety Report 7045025-5 (Version None)
Quarter: 2010Q4

REPORT INFORMATION
  Report Type: 
  Country: None (occurrence: None)
  Receive Date: 20101014
  Receipt Date: 20100930
  Transmission Date: 20110411
  Serious: Yes (Death, Hospitalization, Other)
  Sender: FDA-Public Use
  Company Number: PHEH2006US14223

PATIENT
  Sex: Female
  Weight: 60.5 kg

DRUGS (44)
  1. AREDIA [Suspect]
     Indication: RESORPTION BONE INCREASED
     Dosage: 90 MG, QMO
     Route: 042
     Dates: start: 20021217, end: 20040726
  2. AREDIA [Suspect]
     Dosage: UNK, QMO
     Route: 042
     Dates: start: 20040823, end: 20050222
  3. ZOMETA [Suspect]
     Indication: OSTEOLYSIS
     Dosage: 4 MG, QMO
     Route: 042
     Dates: start: 20040407
  4. THALIDOMIDE [Concomitant]
  5. DECADRON [Concomitant]
     Dosage: 40 MG, QW
     Route: 048
  6. NEXIUM [Concomitant]
     Dosage: 40 MG DAILY
  7. ALBUTEROL [Concomitant]
     Dosage: AS NEEDED
  8. DUONEB [Concomitant]
     Dosage: 10 MG EVERY 6-8 HRS
     Route: 060
  9. QVAR 40 [Concomitant]
     Dosage: 80 MG
  10. PREDNISONE [Concomitant]
     Dosage: 10 MG, QD
  11. PREDNISONE [Concomitant]
     Dosage: 50 MG EVERY OTHER DAY
     Route: 048
  12. VICODIN [Concomitant]
  13. MORPHINE SULFATE [Concomitant]
     Dosage: 15 MG
  14. FLUZONE [Concomitant]
     Dosage: UNK
     Dates: start: 20050101
  15. PREMARIN [Concomitant]
     Dosage: 0.625
  16. DEXAMETHASONE [Concomitant]
     Dosage: 4 MG
  17. PNEUMOVAX 23 [Concomitant]
  18. AMITRIPTYLINE [Concomitant]
     Dosage: 50 MG PER DAY
  19. SYNTHROID [Concomitant]
     Dosage: 75 MCG PER DAY
  20. GLYBURIDE [Concomitant]
     Dosage: 1.25 MG DAILY
  21. LEVAQUIN [Concomitant]
     Dosage: 750 ONCE DAILY
     Route: 048
  22. CEPHALEXIN [Concomitant]
     Dosage: UNK
  23. AUGMENTIN '125' [Concomitant]
     Dosage: 500 MG, TID
  24. ZITHROMAC [Concomitant]
     Dosage: 250 MG DAILY
  25. DIFLUCAN [Concomitant]
     Dosage: FIRST 2 TABLETS AND THEN 1 TABLET EVERY MORNING
  26. ATROVENT [Concomitant]
     Dosage: UNK
  27. ADVAIR DISKUS 100/50 [Concomitant]
  28. VERAPAMIL - SLOW RELEASE [Concomitant]
     Dosage: 240 MG, QD
  29. PHENERGAN [Concomitant]
     Dosage: 25 MG
     Route: 030
     Dates: start: 20040701
  30. PHENERGAN [Concomitant]
     Dosage: 50 MG
     Route: 030
     Dates: start: 20040901
  31. PROTONIX [Concomitant]
     Dosage: UNK
  32. PROTONIX [Concomitant]
     Dosage: 40 MG, BID
  33. LISINOPRIL [Concomitant]
     Dosage: 10 MG, QD
     Route: 048
  34. GLUCOVANCE [Concomitant]
     Dosage: 25/250
  35. METFORMIN [Concomitant]
     Dosage: 250 MG DAILY
  36. SOLU-MEDROL [Concomitant]
     Dosage: 60 MG, Q6H
     Route: 042
  37. ROCEPHIN [Concomitant]
     Dosage: UNK
     Route: 042
  38. VINCRISTINE [Concomitant]
  39. ADRIAMYCIN PFS [Concomitant]
     Dosage: UNK
  40. OXYCONTIN [Concomitant]
     Dosage: 20 MG, Q12H
  41. BIAXIN [Concomitant]
     Dosage: 500 MG, Q12H
  42. CEFTIN [Concomitant]
     Dosage: 250 MG, BID
  43. ASPIRIN [Concomitant]
     Dosage: ONCE DAILY
     Route: 048
  44. NITROGLYCERIN ^A.L.^ [Concomitant]
     Route: 042

REACTIONS (64)
  - ABSCESS [None]
  - ABSCESS DRAINAGE [None]
  - ACTINIC KERATOSIS [None]
  - ACTINOMYCOSIS [None]
  - ALVEOLOPLASTY [None]
  - AMYLOIDOSIS [None]
  - ANXIETY [None]
  - ARTHRALGIA [None]
  - BACK PAIN [None]
  - BIOPSY BONE ABNORMAL [None]
  - CARDIOMEGALY [None]
  - CELLULITIS [None]
  - CHRONIC OBSTRUCTIVE PULMONARY DISEASE [None]
  - COR PULMONALE [None]
  - DEBRIDEMENT [None]
  - DECREASED APPETITE [None]
  - DECREASED INTEREST [None]
  - DIABETES MELLITUS [None]
  - DYSPHAGIA [None]
  - DYSPNOEA [None]
  - FATIGUE [None]
  - GENERAL PHYSICAL HEALTH DETERIORATION [None]
  - GINGIVITIS [None]
  - GRANULOMA [None]
  - HEADACHE [None]
  - HYPERCAPNIA [None]
  - HYPERTENSION [None]
  - HYPONATRAEMIA [None]
  - HYPOTHYROIDISM [None]
  - INFECTION [None]
  - INFLAMMATION [None]
  - INJURY [None]
  - LIFE EXPECTANCY SHORTENED [None]
  - MALIGNANT TUMOUR EXCISION [None]
  - MIGRAINE [None]
  - MOBILITY DECREASED [None]
  - MUSCULAR WEAKNESS [None]
  - MYELOMA RECURRENCE [None]
  - NAUSEA [None]
  - NEUROPATHY PERIPHERAL [None]
  - OEDEMA PERIPHERAL [None]
  - ORAL CANDIDIASIS [None]
  - ORAL DISORDER [None]
  - ORAL MUCOSAL EXFOLIATION [None]
  - OSTEOMYELITIS [None]
  - OSTEONECROSIS OF JAW [None]
  - OSTEOPOROSIS [None]
  - PAIN [None]
  - PAIN IN JAW [None]
  - PNEUMONIA [None]
  - PRIMARY SEQUESTRUM [None]
  - PYREXIA [None]
  - RASH [None]
  - RESPIRATORY ACIDOSIS [None]
  - RESPIRATORY FAILURE [None]
  - SEQUESTRECTOMY [None]
  - SINUSITIS [None]
  - SKIN LESION [None]
  - SPINAL COMPRESSION FRACTURE [None]
  - SQUAMOUS CELL CARCINOMA [None]
  - STOMATITIS [None]
  - SUFFOCATION FEELING [None]
  - VOMITING [None]
  - WEIGHT DECREASED [None]
